FAERS Safety Report 23600745 (Version 3)
Quarter: 2024Q1

REPORT INFORMATION
  Report Type: Spontaneous
  Country: IT (occurrence: IT)
  Receive Date: 20240306
  Receipt Date: 20240308
  Transmission Date: 20240410
  Serious: Yes (Hospitalization, Other)
  Sender: FDA-Public Use
  Company Number: None

PATIENT
  Age: 82 Year
  Sex: Female

DRUGS (1)
  1. ELIQUIS [Suspect]
     Active Substance: APIXABAN
     Indication: Atrial fibrillation
     Dosage: 2.5 MG TWO DAYS
     Route: 048

REACTIONS (4)
  - Cognitive disorder [Unknown]
  - Sopor [Unknown]
  - Bradykinesia [Unknown]
  - Headache [Unknown]

NARRATIVE: CASE EVENT DATE: 20240222
